FAERS Safety Report 9920899 (Version 3)
Quarter: 2014Q2

REPORT INFORMATION
  Report Type: Report from Study
  Country: DE (occurrence: DE)
  Receive Date: 20140225
  Receipt Date: 20140626
  Transmission Date: 20141212
  Serious: Yes (Death, Hospitalization)
  Sender: FDA-Public Use
  Company Number: DE-ROCHE-1350231

PATIENT
  Age: 73 Year
  Sex: Male
  Weight: 88 kg

DRUGS (17)
  1. BEVACIZUMAB [Suspect]
     Indication: COLORECTAL CANCER METASTATIC
     Route: 042
     Dates: start: 20130820, end: 20130820
  2. BEVACIZUMAB [Suspect]
     Route: 042
     Dates: start: 20140121, end: 20140121
  3. FOLINIC ACID [Concomitant]
     Indication: COLORECTAL CANCER METASTATIC
     Dosage: DOSAGES BETWEEN 320MG AND 990MG
     Route: 065
     Dates: start: 20130819, end: 20140128
  4. FOLINIC ACID [Concomitant]
     Route: 065
     Dates: start: 20130819, end: 20140128
  5. OXALIPLATIN [Concomitant]
     Indication: COLORECTAL CANCER METASTATIC
     Dosage: DOSAGES BETWEEN 30MG AND 170MG
     Route: 065
     Dates: start: 20130819, end: 20131125
  6. 5-FU [Concomitant]
     Indication: COLORECTAL CANCER METASTATIC
     Dosage: DOSAGES BETWEEN 630MG AND 800MG
     Route: 040
     Dates: start: 20130819, end: 20131126
  7. 5-FU [Concomitant]
     Dosage: DOSAGES BETWEEN 950MG AND 4550MG
     Route: 042
     Dates: start: 20130819, end: 20140128
  8. AMPHO-MORONAL [Concomitant]
     Route: 065
  9. TRAMADOL [Concomitant]
     Indication: PAIN
     Dosage: TRAMAL DROPS 100 MG/ML?UP TO 4X PER DAY
     Route: 065
  10. GRANISETRON [Concomitant]
     Route: 065
     Dates: start: 20130819, end: 20140128
  11. HCT BETA [Concomitant]
     Dosage: 0-0-1/2
     Route: 065
  12. MCP AL [Concomitant]
     Indication: NAUSEA
     Dosage: UP TO 3X PER DAY
     Route: 065
  13. IBUPROFEN [Concomitant]
     Indication: PAIN IN EXTREMITY
     Dosage: UP TO 3X PER DAY
     Route: 065
  14. TRAMAL LONG [Concomitant]
     Route: 065
  15. NOVALGIN (GERMANY) [Concomitant]
  16. DECORTIN [Concomitant]
     Dosage: 1,5-0-0
     Route: 065
  17. PANTOZOL (GERMANY) [Concomitant]
     Route: 065

REACTIONS (4)
  - Respiratory failure [Fatal]
  - Interstitial lung disease [Fatal]
  - Interstitial lung disease [Not Recovered/Not Resolved]
  - Dyspnoea [Fatal]
